FAERS Safety Report 15765314 (Version 2)
Quarter: 2020Q1

REPORT INFORMATION
  Report Type: Report from Study
  Country: IT (occurrence: IT)
  Receive Date: 20181227
  Receipt Date: 20200317
  Transmission Date: 20200409
  Serious: Yes (Hospitalization, Other)
  Sender: FDA-Public Use
  Company Number: IT-SA-2018SA311086

PATIENT
  Age: 50 Year
  Sex: Male

DRUGS (2)
  1. DUPILUMAB [Suspect]
     Active Substance: DUPILUMAB
     Indication: DERMATITIS ATOPIC
  2. DUPILUMAB [Suspect]
     Active Substance: DUPILUMAB
     Indication: ASTHMA
     Dosage: UNK
     Dates: start: 201807, end: 20181003

REACTIONS (12)
  - Erythema [Unknown]
  - Condition aggravated [Unknown]
  - Gait inability [Unknown]
  - Blood immunoglobulin E increased [Unknown]
  - Arthralgia [Unknown]
  - Eosinophil count increased [Unknown]
  - Dermatitis exfoliative generalised [Recovering/Resolving]
  - Lichenification [Unknown]
  - Skin fissures [Unknown]
  - Dermatitis atopic [Unknown]
  - Drug ineffective [Unknown]
  - Oedema peripheral [Unknown]
